FAERS Safety Report 12842823 (Version 1)
Quarter: 2016Q4

REPORT INFORMATION
  Report Type: Spontaneous
  Country: US (occurrence: US)
  Receive Date: 20161013
  Receipt Date: 20161013
  Transmission Date: 20170207
  Serious: No
  Sender: FDA-Public Use
  Company Number: US-PFIZER INC-2016476977

PATIENT
  Age: 68 Year
  Sex: Female
  Weight: 70.75 kg

DRUGS (1)
  1. IBRANCE [Suspect]
     Active Substance: PALBOCICLIB
     Indication: BREAST CANCER
     Dosage: 125 MG, CYCLIC (D1-D21, Q 28 D)
     Route: 048
     Dates: start: 20160922

REACTIONS (2)
  - Somnolence [Unknown]
  - Asthenia [Unknown]
